FAERS Safety Report 9105495 (Version 7)
Quarter: 2014Q2

REPORT INFORMATION
  Report Type: Spontaneous
  Country: US (occurrence: US)
  Receive Date: 20130220
  Receipt Date: 20140407
  Transmission Date: 20141212
  Serious: Yes (Other)
  Sender: FDA-Public Use
  Company Number: US-PFIZER INC-2013063838

PATIENT
  Age: 58 Year
  Sex: Female
  Weight: 74.83 kg

DRUGS (21)
  1. NEURONTIN [Suspect]
     Indication: NEURALGIA
     Dosage: 600 MG, 3X/DAY
     Route: 048
     Dates: start: 2011, end: 20130220
  2. NEURONTIN [Suspect]
     Indication: SPINAL PAIN
     Dosage: 600 MG (TWO 300MG ORAL CAPSULES), 3X/DAY
     Route: 048
  3. NEURONTIN [Suspect]
     Dosage: 300 MG, 3X/DAY
     Route: 048
     Dates: start: 201303
  4. NEURONTIN [Suspect]
     Dosage: UNK
     Route: 048
  5. LYRICA [Suspect]
     Indication: SPINAL PAIN
     Dosage: 100 MG, 2X/DAY
     Dates: start: 201302
  6. LYRICA [Suspect]
     Indication: NEURALGIA
     Dosage: 100 MG, 2X/DAY
     Route: 048
     Dates: start: 201303, end: 201304
  7. LYRICA [Suspect]
     Indication: NERVE INJURY
     Dosage: 150 MG, 2X/DAY
     Route: 048
     Dates: start: 201304
  8. LYRICA [Suspect]
     Dosage: UNK
     Route: 048
  9. LYRICA [Suspect]
     Dosage: 100 MG, 1X/DAY
     Route: 048
     Dates: start: 201302
  10. LYRICA [Suspect]
     Dosage: 150 MG, 1X/DAY
     Route: 048
  11. LYRICA [Suspect]
     Dosage: 250 MG, 1X/DAY
     Route: 048
  12. LYRICA [Suspect]
     Dosage: 300 MG, 2X/DAY
     Route: 048
  13. LYRICA [Suspect]
     Dosage: 300 MG, 3X/DAY
     Route: 048
  14. LYRICA [Suspect]
     Dosage: 300 MG, 2X/DAY
     Route: 048
     Dates: start: 20140115
  15. GABAPENTIN [Suspect]
     Dosage: 900 MG, UNK (3, 300 MG)
  16. FLEXERIL [Concomitant]
     Dosage: UNK
  17. PAMELOR [Concomitant]
     Dosage: UNK
     Route: 048
  18. PRAVACHOL [Concomitant]
     Dosage: UNK
  19. PRAVASTATIN [Concomitant]
     Indication: BLOOD CHOLESTEROL INCREASED
     Dosage: UNK
  20. CYCLOBENZAPRINE [Concomitant]
     Indication: MUSCLE SPASMS
     Dosage: 10 MG, 2X/DAY
  21. NORTRIPTYLINE [Concomitant]
     Indication: SLEEP DISORDER
     Dosage: 30 MG, 1X/DAY
     Route: 048

REACTIONS (6)
  - Weight increased [Unknown]
  - Burning sensation [Not Recovered/Not Resolved]
  - Pain in extremity [Unknown]
  - Paraesthesia [Unknown]
  - Feeling abnormal [Unknown]
  - Drug ineffective [Unknown]
